FAERS Safety Report 8531900-9 (Version None)
Quarter: 2012Q3

REPORT INFORMATION
  Report Type: 
  Country: None (occurrence: None)
  Receive Date: 20120723
  Receipt Date: 20120719
  Transmission Date: 20120928
  Serious: Yes (Death, Life-Threatening, Hospitalization)
  Sender: FDA-Public Use
  Company Number: PHHY2012PL062055

PATIENT
  Age: 17 Year
  Sex: Male

DRUGS (6)
  1. ETOPOSIDE [Suspect]
     Indication: EWING'S SARCOMA METASTATIC
  2. IFOSFAMIDE [Suspect]
     Indication: EWING'S SARCOMA METASTATIC
  3. CEFEPIME [Suspect]
     Indication: PYREXIA
  4. VINCRISTINE [Suspect]
     Indication: EWING'S SARCOMA METASTATIC
  5. DOXORUBICIN HCL [Suspect]
     Indication: EWING'S SARCOMA METASTATIC
  6. NETILMICIN SULFATE [Suspect]
     Indication: PYREXIA

REACTIONS (12)
  - SEPTIC SHOCK [None]
  - ABDOMINAL PAIN [None]
  - RENAL IMPAIRMENT [None]
  - DIARRHOEA [None]
  - RHABDOMYOLYSIS [None]
  - RENAL FAILURE [None]
  - CHROMATURIA [None]
  - CLOSTRIDIAL INFECTION [None]
  - DISSEMINATED INTRAVASCULAR COAGULATION [None]
  - PAIN IN EXTREMITY [None]
  - PYREXIA [None]
  - PANCYTOPENIA [None]
